FAERS Safety Report 8048100-1 (Version None)
Quarter: 2012Q1

REPORT INFORMATION
  Report Type: 
  Country: None (occurrence: None)
  Receive Date: 20120112
  Receipt Date: 20120112
  Transmission Date: 20120608
  Serious: No
  Sender: FDA-Public Use
  Company Number: None

PATIENT
  Sex: Female
  Weight: 49.8957 kg

DRUGS (1)
  1. ATENOLOL [Suspect]
     Indication: HYPERTENSION
     Dosage: 50 MG AM 25MG PM 2/1/08 - 2/10/08

REACTIONS (4)
  - PRODUCT SUBSTITUTION ISSUE [None]
  - INSOMNIA [None]
  - TREMOR [None]
  - FEELING ABNORMAL [None]
